FAERS Safety Report 9171820 (Version 1)
Quarter: 2013Q1

REPORT INFORMATION
  Report Type: Spontaneous
  Country: BR (occurrence: BR)
  Receive Date: 20130319
  Receipt Date: 20130319
  Transmission Date: 20140127
  Serious: Yes (Other)
  Sender: FDA-Public Use
  Company Number: BR-PFIZER INC-2013088445

PATIENT
  Age: 59 Year
  Sex: Female

DRUGS (1)
  1. LYRICA [Suspect]
     Indication: MOUTH INJURY
     Dosage: 150 MG, 1X/DAY
     Route: 048
     Dates: start: 20130308, end: 20130308

REACTIONS (6)
  - Blood pressure increased [Recovered/Resolved]
  - Hypokinesia [Recovered/Resolved]
  - Feeling of relaxation [Recovered/Resolved]
  - Feeling abnormal [Unknown]
  - Vomiting [Recovered/Resolved]
  - Off label use [Recovered/Resolved]
